FAERS Safety Report 10024331 (Version 2)
Quarter: 2014Q2

REPORT INFORMATION
  Report Type: Spontaneous
  Country: DE (occurrence: None)
  Receive Date: 20140131
  Receipt Date: 20140527
  Transmission Date: 20141212
  Serious: Yes (Other)
  Sender: FDA-Public Use
  Company Number: WIL-001-14-DE

PATIENT
  Age: 31 Year
  Sex: Female

DRUGS (1)
  1. WILATE [Suspect]
     Indication: VON WILLEBRAND^S DISEASE
     Dosage: 328 KIU, 1X1 TOTAL
     Route: 042
     Dates: start: 20130903, end: 20131030

REACTIONS (4)
  - Suspected transmission of an infectious agent via product [None]
  - Erythema infectiosum [None]
  - Abortion spontaneous [None]
  - Exposure during pregnancy [None]
